FAERS Safety Report 15628130 (Version 1)
Quarter: 2018Q4

REPORT INFORMATION
  Report Type: Spontaneous
  Country: CN (occurrence: CN)
  Receive Date: 20181116
  Receipt Date: 20181116
  Transmission Date: 20190205
  Serious: Yes (Death, Other)
  Sender: FDA-Public Use
  Company Number: CN-BAYER-2018-212411

PATIENT
  Age: 68 Year
  Sex: Female

DRUGS (2)
  1. IOPROMIDE. [Suspect]
     Active Substance: IOPROMIDE
     Indication: ANGIOGRAM
     Dosage: 100 ML, ONCE
     Route: 040
     Dates: start: 20181113, end: 20181113
  2. IOPROMIDE. [Suspect]
     Active Substance: IOPROMIDE
     Indication: ANGIOGRAM
     Dosage: UNK
     Dates: start: 20181113, end: 20181113

REACTIONS (4)
  - Death [Fatal]
  - Blood pressure decreased [None]
  - Shock [None]
  - Discomfort [None]

NARRATIVE: CASE EVENT DATE: 20181113
